FAERS Safety Report 5422980-8 (Version None)
Quarter: 2007Q3

REPORT INFORMATION
  Report Type: 
  Country: None (occurrence: None)
  Receive Date: 20070820
  Receipt Date: 20070731
  Transmission Date: 20080115
  Serious: Yes (Death, Hospitalization)
  Sender: FDA-Public Use
  Company Number: ENT2007-0121

PATIENT
  Age: 70 Year
  Sex: Male

DRUGS (11)
  1. COMTAN [Suspect]
     Indication: PARKINSON'S DISEASE
     Dosage: ORAL
     Route: 048
  2. PANTOPRAZOLE SODIUM [Suspect]
     Dosage: 1 DF QD ORAL
     Route: 048
  3. FLURBIPROFEN [Suspect]
     Dosage: 100 MG (50 MG, 2 IN 1 D) ORAL
     Route: 048
     Dates: start: 20070606
  4. PAROXETINE [Suspect]
     Dosage: 1,5 DF QD ORAL
     Route: 048
  5. SINEMET [Suspect]
     Indication: PARKINSON'S DISEASE
     Dosage: ORAL
     Route: 048
  6. REQUIP [Suspect]
     Indication: PARKINSON'S DISEASE
     Dosage: 20 MG (5 MG, 4 IN 1 D) ORAL
     Route: 048
  7. MODOPAR [Suspect]
     Indication: PARKINSON'S DISEASE
     Dosage: 150/600 DAILY ORAL
     Route: 048
  8. TAMSULOSIN HCL [Suspect]
     Dosage: 0.4 MG QD ORAL
     Route: 048
  9. IMOVANE [Suspect]
     Dosage: 0.5 DF, QD, ORAL
     Route: 048
  10. MOTILIUM [Suspect]
     Dosage: 60 MG (20 MG, 3 IN 1 D) ORAL
     Route: 048
  11. PERMIXON [Suspect]
     Dosage: 320 MG (160 MG, 2 IN 1 D), ORAL
     Route: 048

REACTIONS (8)
  - CEREBRAL HAEMATOMA [None]
  - COAGULOPATHY [None]
  - DELAYED RECOVERY FROM ANAESTHESIA [None]
  - GENERAL PHYSICAL HEALTH DETERIORATION [None]
  - INCISION SITE HAEMORRHAGE [None]
  - MYDRIASIS [None]
  - POST PROCEDURAL HAEMORRHAGE [None]
  - PUPILS UNEQUAL [None]
